FAERS Safety Report 7228488-1 (Version None)
Quarter: 2011Q1

REPORT INFORMATION
  Report Type: 
  Country: None (occurrence: None)
  Receive Date: 20110114
  Receipt Date: 20110113
  Transmission Date: 20110831
  Serious: Yes (Hospitalization, Other)
  Sender: FDA-Public Use
  Company Number: NZ-ABBOTT-10P-118-0692479-00

PATIENT
  Sex: Female

DRUGS (5)
  1. HUMIRA [Suspect]
  2. LAMIVUDINE [Concomitant]
     Indication: HEPATITIS B
  3. TEMAZEPAM [Concomitant]
     Indication: PRODUCT USED FOR UNKNOWN INDICATION
  4. HUMIRA [Suspect]
     Dates: start: 20100418
  5. HUMIRA [Suspect]
     Indication: PSORIASIS
     Dates: start: 20100409, end: 20100409

REACTIONS (5)
  - GASTRITIS [None]
  - PSORIASIS [None]
  - HELICOBACTER INFECTION [None]
  - GASTRIC DISORDER [None]
  - ANOSMIA [None]
